FAERS Safety Report 8828989 (Version 2)
Quarter: 2014Q3

REPORT INFORMATION
  Report Type: Report from Study
  Country: US (occurrence: US)
  Receive Date: 20121008
  Receipt Date: 20140822
  Transmission Date: 20150326
  Serious: Yes (Other)
  Sender: FDA-Public Use
  Company Number: US-ROCHE-1136194

PATIENT
  Sex: Female

DRUGS (3)
  1. RITUXAN [Suspect]
     Active Substance: RITUXIMAB
     Indication: OFF LABEL USE
  2. RITUXAN [Suspect]
     Active Substance: RITUXIMAB
     Indication: AUTOIMMUNE HAEMOLYTIC ANAEMIA
     Route: 042
  3. PREDNISONE. [Concomitant]
     Active Substance: PREDNISONE

REACTIONS (14)
  - Haemolysis [Unknown]
  - Dyspnoea [Unknown]
  - Pneumonia [Unknown]
  - Eye disorder [Unknown]
  - Skin disorder [Unknown]
  - Urine abnormality [Unknown]
  - Decubitus ulcer [Unknown]
  - Malaise [Unknown]
  - Off label use [Unknown]
  - Jaundice [Unknown]
  - Fatigue [Unknown]
  - Pruritus [Unknown]
  - Angina pectoris [Unknown]
  - Asthenia [Unknown]
